FAERS Safety Report 7193533-9 (Version None)
Quarter: 2010Q4

REPORT INFORMATION
  Report Type: 
  Country: None (occurrence: None)
  Receive Date: 20101223
  Receipt Date: 20100907
  Transmission Date: 20110411
  Serious: No
  Sender: FDA-Public Use
  Company Number: US-AMGEN-KDL436743

PATIENT

DRUGS (2)
  1. ENBREL [Suspect]
     Indication: RHEUMATOID ARTHRITIS
     Dosage: 50 MG, QWK
     Route: 058
     Dates: start: 20030110
  2. METHOTREXATE [Concomitant]
     Dosage: 10 MG, 4 TIMES/WK
     Route: 048

REACTIONS (4)
  - CARPAL TUNNEL SYNDROME [None]
  - NASOPHARYNGITIS [None]
  - NEURALGIA [None]
  - PAIN IN EXTREMITY [None]
